FAERS Safety Report 15629983 (Version 3)
Quarter: 2019Q1

REPORT INFORMATION
  Report Type: Spontaneous
  Country: US (occurrence: US)
  Receive Date: 20181117
  Receipt Date: 20190320
  Transmission Date: 20190417
  Serious: No
  Sender: FDA-Public Use
  Company Number: US-MYLANLABS-2018M1084988

PATIENT

DRUGS (6)
  1. HEPARIN SODIUM INJECTION USP [Suspect]
     Active Substance: HEPARIN SODIUM
     Indication: PRODUCT USED FOR UNKNOWN INDICATION
     Dosage: UNK
  2. HEPARIN SODIUM INJECTION USP [Suspect]
     Active Substance: HEPARIN SODIUM
     Dosage: UNK
  3. HEPARIN SODIUM INJECTION USP [Suspect]
     Active Substance: HEPARIN SODIUM
     Dosage: UNK
  4. HEPARIN SODIUM INJECTION USP [Suspect]
     Active Substance: HEPARIN SODIUM
     Dosage: UNK
  5. HEPARIN SODIUM INJECTION USP [Suspect]
     Active Substance: HEPARIN SODIUM
     Dosage: UNK
  6. HEPARIN SODIUM INJECTION USP [Suspect]
     Active Substance: HEPARIN SODIUM
     Dosage: UNK

REACTIONS (3)
  - No adverse event [Unknown]
  - Underdose [Unknown]
  - Product packaging quantity issue [Unknown]
